FAERS Safety Report 8219192-1 (Version None)
Quarter: 2012Q1

REPORT INFORMATION
  Report Type: 
  Country: None (occurrence: None)
  Receive Date: 20120319
  Receipt Date: 20120312
  Transmission Date: 20120608
  Serious: Yes (Hospitalization)
  Sender: FDA-Public Use
  Company Number: US-AMGEN-USASP2012015960

PATIENT
  Age: 70 Year
  Sex: Female

DRUGS (3)
  1. SENSIPAR [Suspect]
     Dosage: 60 MG, UNK
  2. SENSIPAR [Suspect]
     Indication: HYPERPARATHYROIDISM SECONDARY
     Dosage: 30 MG, UNK
  3. SENSIPAR [Suspect]
     Dosage: 60 MG, UNK

REACTIONS (3)
  - HOSPITALISATION [None]
  - NAUSEA [None]
  - URTICARIA [None]
